FAERS Safety Report 10661861 (Version 1)
Quarter: 2014Q4

REPORT INFORMATION
  Report Type: Spontaneous
  Country: US (occurrence: None)
  Receive Date: 20141217
  Receipt Date: 20141217
  Transmission Date: 20150529
  Serious: No
  Sender: FDA-Public Use
  Company Number: None

PATIENT
  Age: 51 Year
  Sex: Male

DRUGS (10)
  1. CHOLESTYRAMINE. [Concomitant]
     Active Substance: CHOLESTYRAMINE
  2. OXYCODONE [Concomitant]
     Active Substance: OXYCODONE
  3. INSULIN GLARGINE [Suspect]
     Active Substance: INSULIN GLARGINE
     Indication: HYPERGLYCAEMIA
     Dosage: 10 UNITS, AT BEDTIME
     Route: 058
  4. INSULIN ASPART [Concomitant]
     Active Substance: INSULIN ASPART
  5. TRAZODONE [Concomitant]
     Active Substance: TRAZODONE HYDROCHLORIDE
  6. DEXTROSE. [Concomitant]
     Active Substance: DEXTROSE
  7. GABAPENTIN. [Concomitant]
     Active Substance: GABAPENTIN
  8. LOPERAMIDE [Concomitant]
     Active Substance: LOPERAMIDE
  9. METOPROLOL [Concomitant]
     Active Substance: METOPROLOL
  10. OCTREOTIDE [Concomitant]
     Active Substance: OCTREOTIDE

REACTIONS (1)
  - Blood glucose decreased [None]

NARRATIVE: CASE EVENT DATE: 20140910
